FAERS Safety Report 15612227 (Version 1)
Quarter: 2018Q4

REPORT INFORMATION
  Report Type: Spontaneous
  Country: US (occurrence: US)
  Receive Date: 20181113
  Receipt Date: 20181113
  Transmission Date: 20190205
  Serious: No
  Sender: FDA-Public Use
  Company Number: US-ALKERMES INC.-ALK-2018-006115

PATIENT
  Age: 43 Year
  Sex: Female

DRUGS (2)
  1. VIVITROL [Suspect]
     Active Substance: NALTREXONE
     Indication: DRUG USE DISORDER
     Dosage: 380 MG, QMO
     Route: 030
     Dates: start: 20181105
  2. NALTREXONE [Concomitant]
     Active Substance: NALTREXONE
     Indication: PRODUCT USED FOR UNKNOWN INDICATION
     Dosage: UNK
     Route: 065
     Dates: start: 201810, end: 20181105

REACTIONS (6)
  - Oropharyngeal pain [Unknown]
  - Hyperhidrosis [Unknown]
  - Limb discomfort [Unknown]
  - Drug withdrawal syndrome [Unknown]
  - Loss of control of legs [Unknown]
  - Nausea [Unknown]

NARRATIVE: CASE EVENT DATE: 20181105
